FAERS Safety Report 7018939-X (Version None)
Quarter: 2010Q3

REPORT INFORMATION
  Report Type: 
  Country: None (occurrence: None)
  Receive Date: 20100928
  Receipt Date: 20100914
  Transmission Date: 20110219
  Serious: Yes (Hospitalization)
  Sender: FDA-Public Use
  Company Number: TN-MYLANLABS-2010S1016802

PATIENT
  Age: 7 Month
  Sex: Male

DRUGS (3)
  1. IBUPROFEN [Suspect]
     Indication: PYREXIA
     Route: 065
  2. IBUPROFEN [Suspect]
     Indication: COUGH
     Route: 065
  3. IBUPROFEN [Suspect]
     Indication: RHINORRHOEA
     Route: 065

REACTIONS (1)
  - METHAEMOGLOBINAEMIA [None]
